FAERS Safety Report 8130397-0 (Version None)
Quarter: 2012Q1

REPORT INFORMATION
  Report Type: 
  Country: None (occurrence: None)
  Receive Date: 20120210
  Receipt Date: 20120208
  Transmission Date: 20120608
  Serious: Yes (Other)
  Sender: FDA-Public Use
  Company Number: PHHY2012JP011064

PATIENT
  Sex: Female

DRUGS (1)
  1. PARLODEL [Suspect]
     Route: 048
     Dates: start: 20120119

REACTIONS (3)
  - THROMBOSIS [None]
  - VAGINAL DISCHARGE [None]
  - HAEMATURIA [None]
